FAERS Safety Report 22212686 (Version 2)
Quarter: 2023Q2

REPORT INFORMATION
  Report Type: Spontaneous
  Country: MA (occurrence: MA)
  Receive Date: 20230414
  Receipt Date: 20230511
  Transmission Date: 20230721
  Serious: Yes (Hospitalization)
  Sender: FDA-Public Use
  Company Number: MA-SA-SAC20230321000418

PATIENT
  Age: 4 Year
  Sex: Male
  Weight: 15 kg

DRUGS (1)
  1. ALDURAZYME [Suspect]
     Active Substance: LARONIDASE
     Dosage: 100 IU/KG, QW
     Route: 042
     Dates: start: 20210102

REACTIONS (6)
  - Adenoidal hypertrophy [Unknown]
  - Upper airway obstruction [Unknown]
  - Urticaria [Recovering/Resolving]
  - Infusion related reaction [Unknown]
  - Face oedema [Unknown]
  - Dyspnoea [Unknown]

NARRATIVE: CASE EVENT DATE: 20220801
